FAERS Safety Report 11537680 (Version 2)
Quarter: 2015Q4

REPORT INFORMATION
  Report Type: Spontaneous
  Country: US (occurrence: US)
  Receive Date: 20150922
  Receipt Date: 20151027
  Transmission Date: 20160304
  Serious: Yes (Death, Other)
  Sender: FDA-Public Use
  Company Number: US-JNJFOC-20150915559

PATIENT
  Age: 57 Year
  Sex: Female

DRUGS (3)
  1. XARELTO [Suspect]
     Active Substance: RIVAROXABAN
     Indication: ATRIAL FIBRILLATION
     Dosage: WITH BREAKFAST
     Route: 048
     Dates: start: 201306, end: 20131221
  2. XARELTO [Suspect]
     Active Substance: RIVAROXABAN
     Indication: THROMBOSIS PROPHYLAXIS
     Dosage: WITH BREAKFAST
     Route: 048
     Dates: start: 201306, end: 20131221
  3. XARELTO [Suspect]
     Active Substance: RIVAROXABAN
     Indication: CEREBROVASCULAR ACCIDENT PROPHYLAXIS
     Dosage: WITH BREAKFAST
     Route: 048
     Dates: start: 201306, end: 20131221

REACTIONS (3)
  - Internal haemorrhage [Not Recovered/Not Resolved]
  - Myocardial infarction [Fatal]
  - Anaemia [Fatal]

NARRATIVE: CASE EVENT DATE: 2013
